FAERS Safety Report 18201197 (Version 1)
Quarter: 2020Q3

REPORT INFORMATION
  Report Type: Spontaneous
  Country: US (occurrence: US)
  Receive Date: 20200827
  Receipt Date: 20200827
  Transmission Date: 20201103
  Serious: No
  Sender: FDA-Public Use
  Company Number: US-B.I. PHARMACEUTICALS,INC./RIDGEFIELD-2020-US-044043

PATIENT
  Age: 84 Year
  Sex: Female

DRUGS (1)
  1. JARDIANCE [Suspect]
     Active Substance: EMPAGLIFLOZIN
     Indication: TYPE 2 DIABETES MELLITUS
     Dosage: 10MG DAILY
     Route: 065
     Dates: start: 201912

REACTIONS (3)
  - Ankle fracture [Recovered/Resolved]
  - Anorectal discomfort [Unknown]
  - Anorectal disorder [Unknown]

NARRATIVE: CASE EVENT DATE: 202001
